FAERS Safety Report 16542287 (Version 1)
Quarter: 2019Q3

REPORT INFORMATION
  Report Type: Spontaneous
  Country: DE (occurrence: DE)
  Receive Date: 20190708
  Receipt Date: 20190708
  Transmission Date: 20191004
  Serious: Yes (Other)
  Sender: FDA-Public Use
  Company Number: PHHY2019DE156491

PATIENT
  Age: 67 Year
  Sex: Female
  Weight: 60 kg

DRUGS (7)
  1. MELPERONE [Suspect]
     Active Substance: MELPERONE
     Indication: PRODUCT USED FOR UNKNOWN INDICATION
     Dosage: 3 DF, QD (1-1-1 TABLET/S LONG-TERM MEDICATION)
     Route: 048
  2. QUETIAPINE. [Suspect]
     Active Substance: QUETIAPINE
     Indication: PRODUCT USED FOR UNKNOWN INDICATION
     Dosage: 50 MG, 1 TOTAL (1 TABLET/S CONFUSION)
     Route: 048
     Dates: start: 20190625, end: 20190625
  3. RIVASTIGMIN BETA [Suspect]
     Active Substance: RIVASTIGMINE
     Indication: PRODUCT USED FOR UNKNOWN INDICATION
     Dosage: 3 MG, QD
     Route: 048
  4. XARELTO [Suspect]
     Active Substance: RIVAROXABAN
     Indication: PRODUCT USED FOR UNKNOWN INDICATION
     Dosage: 1 DF, QD (1 TABLET/S CONFUSION)
     Route: 048
  5. IBUPROFEN. [Suspect]
     Active Substance: IBUPROFEN
     Indication: PRODUCT USED FOR UNKNOWN INDICATION
     Dosage: 600 MG, 1 TOTAL
     Route: 048
     Dates: start: 20190625, end: 20190625
  6. MIRTAZAPINE. [Suspect]
     Active Substance: MIRTAZAPINE
     Indication: PRODUCT USED FOR UNKNOWN INDICATION
     Dosage: 1 DF, QD (0-0-1 TABLET/S LONG-TERM MEDICATION)
     Route: 048
  7. MADOPAR [Suspect]
     Active Substance: BENSERAZIDE HYDROCHLORIDE\LEVODOPA
     Indication: PRODUCT USED FOR UNKNOWN INDICATION
     Dosage: 125 MG, 1 TOTAL (1 TABLET/S CONFUSION)
     Route: 048
     Dates: start: 20190625, end: 20190625

REACTIONS (2)
  - Vomiting [Unknown]
  - Accidental exposure to product [Unknown]
